FAERS Safety Report 24638790 (Version 3)
Quarter: 2024Q4

REPORT INFORMATION
  Report Type: Spontaneous
  Country: US (occurrence: US)
  Receive Date: 20241119
  Receipt Date: 20241206
  Transmission Date: 20250114
  Serious: No
  Sender: BRISTOL-MYERS SQUIBB COMPANY
  Company Number: US-BRISTOL-MYERS SQUIBB COMPANY-2024-178876

PATIENT
  Age: 87 Year
  Sex: Female

DRUGS (1)
  1. LENALIDOMIDE [Suspect]
     Active Substance: LENALIDOMIDE
     Indication: Plasma cell myeloma
     Route: 048

REACTIONS (8)
  - Product dose omission issue [Unknown]
  - Blood pressure abnormal [Recovering/Resolving]
  - Musculoskeletal discomfort [Recovering/Resolving]
  - Hypoacusis [Recovering/Resolving]
  - Decreased appetite [Recovering/Resolving]
  - Diarrhoea [Recovering/Resolving]
  - Depression [Recovering/Resolving]
  - Off label use [Unknown]
